FAERS Safety Report 14944970 (Version 2)
Quarter: 2018Q2

REPORT INFORMATION
  Report Type: Spontaneous
  Country: SE (occurrence: SE)
  Receive Date: 20180529
  Receipt Date: 20180613
  Transmission Date: 20180711
  Serious: Yes (Other)
  Sender: FDA-Public Use
  Company Number: SE-TEVA-2018-SE-898247

PATIENT
  Age: 61 Year
  Sex: Male

DRUGS (6)
  1. LYRICA 150 MG KAPSEL, H?RD [Concomitant]
  2. CITODON 500 MG/30 MG TABLETT [Concomitant]
  3. LERGIGAN 25 MG FILMDRAGERAD TABLETT [Concomitant]
     Dosage: AS NECESSARY
  4. LEVAXIN 100 MIKROGRAM TABLETT [Concomitant]
  5. AMLODIPINE [Suspect]
     Active Substance: AMLODIPINE BESYLATE
     Indication: HYPERTENSION
     Dosage: 5 MILLIGRAM DAILY;
     Route: 048
     Dates: start: 20180202, end: 20180316
  6. IMOVANE 7,5 MG TABLETT [Concomitant]

REACTIONS (1)
  - Hypokalaemia [Unknown]

NARRATIVE: CASE EVENT DATE: 201802
